FAERS Safety Report 6793812-0 (Version None)
Quarter: 2010Q2

REPORT INFORMATION
  Report Type: 
  Country: None (occurrence: None)
  Receive Date: 20100624
  Receipt Date: 20090602
  Transmission Date: 20101027
  Serious: No
  Sender: FDA-Public Use
  Company Number: US-PFIZER INC-2009152253

PATIENT
  Sex: Female

DRUGS (7)
  1. GEODON [Suspect]
     Indication: MENTAL DISORDER
     Dosage: UNK
     Dates: start: 20081001
  2. LEXAPRO [Concomitant]
     Indication: ATTENTION DEFICIT/HYPERACTIVITY DISORDER
     Dosage: UNK
  3. REGLAN [Concomitant]
     Indication: ATTENTION DEFICIT/HYPERACTIVITY DISORDER
     Dosage: UNK
  4. TEGRETOL [Concomitant]
     Dosage: UNK
  5. REQUIP [Concomitant]
     Dosage: UNK
  6. TRAZODONE [Concomitant]
     Dosage: UNK
  7. EFFEXOR [Concomitant]
     Dosage: UNK

REACTIONS (1)
  - FATIGUE [None]
